FAERS Safety Report 4668446-4 (Version None)
Quarter: 2005Q2

REPORT INFORMATION
  Report Type: 
  Country: None (occurrence: None)
  Receive Date: 20050523
  Receipt Date: 20050207
  Transmission Date: 20051028
  Serious: Yes (Other)
  Sender: FDA-Public Use
  Company Number: PHEH2005US01796

PATIENT
  Age: 66 Year
  Sex: Female

DRUGS (2)
  1. PAMIDRONATE DISODIUM [Suspect]
     Indication: BREAST CANCER
     Route: 065
  2. ZOLEDRONIC ACID [Suspect]
     Indication: BREAST CANCER
     Route: 065

REACTIONS (4)
  - BONE INFECTION [None]
  - JAW DISORDER [None]
  - LOCALISED INFECTION [None]
  - OSTEONECROSIS [None]
